FAERS Safety Report 9026338 (Version 1)
Quarter: 2012Q4

REPORT INFORMATION
  Report Type: Spontaneous
  Country: US (occurrence: None)
  Receive Date: 20121218
  Receipt Date: 20121218
  Transmission Date: 20130627
  Serious: Yes (Other)
  Sender: FDA-Public Use
  Company Number: None

PATIENT
  Age: 66 Year
  Sex: Male

DRUGS (1)
  1. EYLEA [Suspect]
     Dosage: 2 mg- 0.05 mL- 6 - 8 weeks Ophthalmic  Regeneron
     Route: 047
     Dates: start: 20120209, end: 20121115

REACTIONS (1)
  - Uveitis [None]
